FAERS Safety Report 5524660-7 (Version None)
Quarter: 2007Q4

REPORT INFORMATION
  Report Type: 
  Country: None (occurrence: None)
  Receive Date: 20071123
  Receipt Date: 20071114
  Transmission Date: 20080405
  Serious: Yes (Hospitalization)
  Sender: FDA-Public Use
  Company Number: US-SHR-US-2007-043464

PATIENT
  Age: 47 Year
  Sex: Female

DRUGS (2)
  1. BETASERON [Suspect]
     Dosage: 8 MIU, EVERY 2D
     Route: 058
     Dates: start: 20070516
  2. CORTICOSTEROIDS FOR SYSTEMIC USE [Concomitant]
     Route: 042

REACTIONS (2)
  - DRUG DOSE OMISSION [None]
  - VERTIGO [None]
